FAERS Safety Report 7494225-9 (Version None)
Quarter: 2011Q2

REPORT INFORMATION
  Report Type: 
  Country: None (occurrence: None)
  Receive Date: 20110520
  Receipt Date: 20101228
  Transmission Date: 20111010
  Serious: Yes (Hospitalization)
  Sender: FDA-Public Use
  Company Number: US-BAYER-201010601NA

PATIENT
  Age: 49 Year
  Sex: Female
  Weight: 74 kg

DRUGS (12)
  1. FOLIC ACID [Concomitant]
     Dosage: 400 MG, UNK
  2. NABUMETONE [Concomitant]
     Indication: RHEUMATOID ARTHRITIS
     Dosage: 750 MG, QD
  3. SEROQUEL [Concomitant]
     Indication: DEPRESSION
     Dosage: 800 MG, ONCE
  4. YASMIN [Suspect]
     Indication: CONTRACEPTION
     Dosage: UNK
     Route: 048
     Dates: start: 20010101
  5. YASMIN [Suspect]
     Dosage: UNK
     Dates: start: 20030101, end: 20090101
  6. METHOTREXATE [Concomitant]
     Indication: RHEUMATOID ARTHRITIS
     Dosage: 15 MG, OW
  7. METFORMIN HCL [Concomitant]
     Dosage: UNK
     Dates: start: 19980101, end: 20080101
  8. SERTRALINE HYDROCHLORIDE [Concomitant]
     Indication: DEPRESSION
     Dosage: 50 MG, ONCE
  9. SYNTHROID [Concomitant]
     Dosage: UNK
     Dates: start: 20070101
  10. YAZ [Suspect]
     Indication: CONTRACEPTION
     Dosage: UNK
     Route: 048
     Dates: start: 20030101, end: 20090501
  11. ENBREL [Concomitant]
     Dosage: UNK UNK, OW
  12. DIOVAN [Concomitant]
     Dosage: 20 MG, UNK

REACTIONS (4)
  - NEPHROLITHIASIS [None]
  - THROMBOSIS [None]
  - PULMONARY EMBOLISM [None]
  - DEEP VEIN THROMBOSIS [None]
